FAERS Safety Report 6528227-3 (Version None)
Quarter: 2010Q1

REPORT INFORMATION
  Report Type: 
  Country: None (occurrence: None)
  Receive Date: 20100106
  Receipt Date: 20100104
  Transmission Date: 20100710
  Serious: Yes (Hospitalization)
  Sender: FDA-Public Use
  Company Number: IE-ROCHE-677382

PATIENT
  Sex: Female
  Weight: 58.5 kg

DRUGS (3)
  1. BEVACIZUMAB [Suspect]
     Indication: BREAST CANCER
     Dosage: VIAL
     Route: 042
     Dates: start: 20091215
  2. DOCETAXEL [Suspect]
     Indication: BREAST CANCER
     Dosage: VIAL.
     Route: 042
     Dates: start: 20091215
  3. CYCLOPHOSPHAMIDE [Suspect]
     Indication: BREAST CANCER
     Dosage: VIAL.
     Route: 042
     Dates: start: 20091215

REACTIONS (2)
  - FEBRILE NEUTROPENIA [None]
  - ODYNOPHAGIA [None]
